FAERS Safety Report 21395641 (Version 2)
Quarter: 2022Q4

REPORT INFORMATION
  Report Type: Report from Study
  Country: TR (occurrence: TR)
  Receive Date: 20220930
  Receipt Date: 20221019
  Transmission Date: 20230113
  Serious: Yes (Death)
  Sender: FDA-Public Use
  Company Number: TR-BAYER-2022P016206

PATIENT

DRUGS (1)
  1. COPANLISIB [Suspect]
     Active Substance: COPANLISIB

REACTIONS (1)
  - Death [Fatal]
